FAERS Safety Report 8303813-9 (Version None)
Quarter: 2012Q2

REPORT INFORMATION
  Report Type: 
  Country: None (occurrence: None)
  Receive Date: 20120423
  Receipt Date: 20120413
  Transmission Date: 20120825
  Serious: Yes (Hospitalization)
  Sender: FDA-Public Use
  Company Number: PHHY2012JP029099

PATIENT
  Sex: Male

DRUGS (2)
  1. TEGRETOL [Suspect]
     Indication: EPILEPSY
     Dosage: 600 MG, TID
     Route: 048
     Dates: end: 20120412
  2. TEGRETOL [Suspect]
     Dosage: 800 MG, TID
     Route: 048
     Dates: start: 20120413

REACTIONS (7)
  - MALNUTRITION [None]
  - ANAEMIA [None]
  - FRACTURE [None]
  - OEDEMA [None]
  - AKINESIA [None]
  - EPILEPSY [None]
  - FALL [None]
